FAERS Safety Report 7029288-8 (Version None)
Quarter: 2010Q4

REPORT INFORMATION
  Report Type: 
  Country: None (occurrence: None)
  Receive Date: 20101005
  Receipt Date: 20100921
  Transmission Date: 20110411
  Serious: Yes (Hospitalization)
  Sender: FDA-Public Use
  Company Number: PHHY2010NL43057

PATIENT
  Sex: Male

DRUGS (6)
  1. ZOMETA [Suspect]
     Dosage: 4 MG/ 5ML, 20 MINS
     Route: 042
     Dates: start: 20100210
  2. ZOMETA [Suspect]
     Dosage: 4 MG/ 5ML, 20 MINS
     Route: 042
     Dates: start: 20100310
  3. ZOMETA [Suspect]
     Dosage: 4 MG/ 5ML, 20 MINS
     Route: 042
     Dates: start: 20100407
  4. ZOMETA [Suspect]
     Dosage: 4 MG/ 5ML, 20 MINS
     Route: 042
     Dates: start: 20100504
  5. ZOMETA [Suspect]
     Dosage: 4 MG/ 5ML, 20 MINS
     Route: 042
     Dates: start: 20100602
  6. ZOMETA [Suspect]
     Dosage: 4 MG/ 5ML, 20 MINS
     Route: 042
     Dates: start: 20100630

REACTIONS (6)
  - ABDOMINAL ADHESIONS [None]
  - ABDOMINAL PAIN [None]
  - CONSTIPATION [None]
  - DECREASED APPETITE [None]
  - GASTROINTESTINAL DISORDER [None]
  - PAIN [None]
